FAERS Safety Report 7070246-5 (Version None)
Quarter: 2010Q4

REPORT INFORMATION
  Report Type: 
  Country: None (occurrence: None)
  Receive Date: 20101028
  Receipt Date: 20101001
  Transmission Date: 20110411
  Serious: No
  Sender: FDA-Public Use
  Company Number: US-WYE-H17918210

PATIENT
  Sex: Male

DRUGS (1)
  1. ADVIL [Suspect]
     Indication: ANALGESIC THERAPY
     Dosage: UNKNOWN, AS NEEDED
     Route: 048

REACTIONS (1)
  - ABDOMINAL PAIN UPPER [None]
